FAERS Safety Report 4614511-7 (Version None)
Quarter: 2005Q2

REPORT INFORMATION
  Report Type: 
  Country: None (occurrence: None)
  Receive Date: 20050307
  Receipt Date: 20050105
  Transmission Date: 20051028
  Serious: No
  Sender: FDA-Public Use
  Company Number: USA050187527

PATIENT
  Age: 40 Year
  Sex: Male

DRUGS (3)
  1. ALIMTA [Suspect]
     Dosage: 855 MG
     Dates: start: 20041101
  2. VITAMINS [Concomitant]
  3. DECADRON [Concomitant]

REACTIONS (1)
  - HYPERAESTHESIA [None]
